FAERS Safety Report 8298338-3 (Version None)
Quarter: 2012Q2

REPORT INFORMATION
  Report Type: 
  Country: None (occurrence: None)
  Receive Date: 20120419
  Receipt Date: 20120416
  Transmission Date: 20120825
  Serious: Yes (Death, Life-Threatening, Hospitalization, Other)
  Sender: FDA-Public Use
  Company Number: PHHO2012BR001148

PATIENT
  Sex: Male
  Weight: 53 kg

DRUGS (6)
  1. VALSARTAN [Suspect]
     Indication: CARDIAC FAILURE CHRONIC
     Dosage: RUN-IN PHASE
  2. FUROSEMIDE [Suspect]
     Indication: CARDIAC FAILURE CONGESTIVE
     Dosage: 40 MG, QD
     Dates: start: 20111222, end: 20120112
  3. FUROSEMIDE [Suspect]
     Dosage: UNK
     Route: 048
     Dates: start: 20120113
  4. ENALAPRIL MALEATE [Suspect]
     Indication: CARDIAC FAILURE CHRONIC
     Dosage: RUN-IN PHASE
  5. BLINDED NO TREATMENT RECEIVED [Suspect]
     Indication: CARDIAC FAILURE CHRONIC
     Dosage: RUN-IN PHASE
  6. VALSARTAN [Suspect]
     Indication: CARDIAC FAILURE CHRONIC
     Dosage: 200 MG, QD
     Route: 048
     Dates: start: 20111222, end: 20120113

REACTIONS (6)
  - BLOOD CREATININE INCREASED [None]
  - CARDIOGENIC SHOCK [None]
  - AMERICAN TRYPANOSOMIASIS [None]
  - VENTRICULAR FIBRILLATION [None]
  - HYPERKALAEMIA [None]
  - CARDIAC ARREST [None]
